FAERS Safety Report 10245159 (Version 1)
Quarter: 2014Q2

REPORT INFORMATION
  Report Type: Spontaneous
  Country: US (occurrence: US)
  Receive Date: 20140618
  Receipt Date: 20140618
  Transmission Date: 20141212
  Serious: No
  Sender: FDA-Public Use
  Company Number: US-PFIZER INC-2014164383

PATIENT
  Sex: Female

DRUGS (2)
  1. CELEBREX [Suspect]
     Dosage: 2 DF, DAILY
     Route: 048
  2. CELEBREX [Suspect]
     Dosage: 1 DF, DAILY

REACTIONS (2)
  - Intentional product misuse [Unknown]
  - Pain [Unknown]
